FAERS Safety Report 9458270 (Version 2)
Quarter: 2013Q3

REPORT INFORMATION
  Report Type: Spontaneous
  Country: US (occurrence: None)
  Receive Date: 20130812
  Receipt Date: 20130816
  Transmission Date: 20140515
  Serious: Yes (Other)
  Sender: FDA-Public Use
  Company Number: JPI-P-034208

PATIENT
  Age: 44 Year
  Sex: Male

DRUGS (2)
  1. XYREM [Suspect]
     Indication: CATAPLEXY
     Route: 048
     Dates: start: 200410
  2. GABAPENTIN [Concomitant]

REACTIONS (6)
  - Epilepsy [None]
  - Amnesia [None]
  - Fear [None]
  - Panic attack [None]
  - Anxiety [None]
  - Complex partial seizures [None]
